FAERS Safety Report 13838535 (Version 6)
Quarter: 2018Q1

REPORT INFORMATION
  Report Type: Report from Study
  Country: DE (occurrence: DE)
  Receive Date: 20170807
  Receipt Date: 20180301
  Transmission Date: 20180508
  Serious: Yes (Hospitalization)
  Sender: FDA-Public Use
  Company Number: DE-ROCHE-1971125

PATIENT
  Age: 56 Year
  Sex: Female
  Weight: 89 kg

DRUGS (3)
  1. COBIMETINIB. [Suspect]
     Active Substance: COBIMETINIB
     Indication: MALIGNANT MELANOMA
     Dosage: DATE OF MOST RECENT DOSE OF COBIMETINIB PRIOR TO THE EPISODES OF CK ELEVATION AND RASH:27/JUL/2017?D
     Route: 048
     Dates: start: 20170713
  2. VEMURAFENIB. [Suspect]
     Active Substance: VEMURAFENIB
     Indication: MALIGNANT MELANOMA
     Dosage: DATE OF MOST RECENT DOSE OF VEMURAFENIB (TOTAL NUMBER OF TABLET 4) PRIOR TO FIRST EPISODE OF CK ELEV
     Route: 048
     Dates: start: 20170713
  3. PANTOPRAZOL [Concomitant]
     Active Substance: PANTOPRAZOLE SODIUM
     Route: 065
     Dates: start: 20170802, end: 20170823

REACTIONS (3)
  - Rash erythematous [Recovered/Resolved]
  - Blood creatine phosphokinase increased [Recovered/Resolved]
  - Rash [Recovered/Resolved]

NARRATIVE: CASE EVENT DATE: 20170727
